FAERS Safety Report 21997007 (Version 2)
Quarter: 2023Q1

REPORT INFORMATION
  Report Type: Spontaneous
  Country: TR (occurrence: None)
  Receive Date: 20230215
  Receipt Date: 20230301
  Transmission Date: 20230417
  Serious: Yes (Other)
  Sender: FDA-Public Use
  Company Number: TR-Unichem Pharmaceuticals (USA) Inc-UCM202302-000172

PATIENT
  Age: 57 Year
  Sex: Male

DRUGS (7)
  1. DONEPEZIL [Suspect]
     Active Substance: DONEPEZIL
     Indication: Frontotemporal dementia
  2. RISPERIDONE [Concomitant]
     Active Substance: RISPERIDONE
     Indication: Frontotemporal dementia
  3. RISPERIDONE [Concomitant]
     Active Substance: RISPERIDONE
  4. QUETIAPINE [Concomitant]
     Active Substance: QUETIAPINE
     Indication: Frontotemporal dementia
     Dosage: GRADUALLY INCREASED WITH UNKNOWN STRENGTH
  5. QUETIAPINE [Concomitant]
     Active Substance: QUETIAPINE
     Dosage: GRADUALLY INCREASED TO 100 MG/DAY
  6. MEMANTINE [Concomitant]
     Active Substance: MEMANTINE
     Indication: Frontotemporal dementia
  7. ARIPIPRAZOLE [Concomitant]
     Active Substance: ARIPIPRAZOLE
     Indication: Frontotemporal dementia

REACTIONS (4)
  - Frontotemporal dementia [Unknown]
  - Condition aggravated [Unknown]
  - Sedation complication [Unknown]
  - Hypotension [Unknown]
